FAERS Safety Report 24694265 (Version 1)
Quarter: 2024Q4

REPORT INFORMATION
  Report Type: Spontaneous
  Country: US (occurrence: US)
  Receive Date: 20241204
  Receipt Date: 20241204
  Transmission Date: 20250115
  Serious: No
  Sender: PACIRA
  Company Number: US-ORG100016242-2024000022

PATIENT
  Age: 100 Year
  Sex: Male

DRUGS (1)
  1. ZILRETTA [Suspect]
     Active Substance: TRIAMCINOLONE ACETONIDE
     Indication: Osteoarthritis
     Dosage: ONE INJECTION
     Route: 050
     Dates: start: 202312, end: 202312

REACTIONS (2)
  - Therapeutic response decreased [Unknown]
  - Pain [Unknown]
